FAERS Safety Report 19109326 (Version 1)
Quarter: 2021Q2

REPORT INFORMATION
  Report Type: Spontaneous
  Country: DE (occurrence: DE)
  Receive Date: 20210409
  Receipt Date: 20210409
  Transmission Date: 20210717
  Serious: Yes (Hospitalization)
  Sender: FDA-Public Use
  Company Number: DE-AUROBINDO-AUR-APL-2020-050470

PATIENT
  Age: 73 Year
  Sex: Female
  Weight: 82 kg

DRUGS (27)
  1. IRINOTECAN [Suspect]
     Active Substance: IRINOTECAN
     Dosage: 170 MILLIGRAM
     Route: 065
     Dates: start: 20201109
  2. FLUOROURACIL. [Suspect]
     Active Substance: FLUOROURACIL
     Dosage: 980 MILLIGRAM
     Route: 040
     Dates: start: 20200810
  3. FLUOROURACIL. [Suspect]
     Active Substance: FLUOROURACIL
     Dosage: 1460 MILLIGRAM
     Route: 042
     Dates: start: 20201207
  4. FLUOROURACIL. [Suspect]
     Active Substance: FLUOROURACIL
     Dosage: 1100 MILLIGRAM
     Route: 042
     Dates: start: 20201019
  5. SYMBICORT [Concomitant]
     Active Substance: BUDESONIDE\FORMOTEROL FUMARATE DIHYDRATE
     Indication: ASTHMA
     Dosage: 640 MICROGRAM, TWO TIMES A DAY
     Route: 065
  6. FOLINIC ACID [Suspect]
     Active Substance: LEUCOVORIN
     Indication: COLORECTAL CANCER METASTATIC
     Dosage: 760 MILLIGRAM
     Route: 065
     Dates: start: 20200810
  7. FLUOROURACIL. [Suspect]
     Active Substance: FLUOROURACIL
     Indication: COLORECTAL CANCER METASTATIC
     Dosage: 2260 MILLIGRAM
     Route: 042
     Dates: start: 20200810
  8. METFORMIN [Concomitant]
     Active Substance: METFORMIN HYDROCHLORIDE
     Indication: TYPE 2 DIABETES MELLITUS
     Dosage: 1000 MILLIGRAM, TWO TIMES A DAY
     Route: 048
  9. PULMICORT TURBUHALER [Concomitant]
     Active Substance: BUDESONIDE
     Indication: ASTHMA
     Dosage: 1 MILLIGRAM, TWO TIMES A DAY
     Route: 065
  10. FOLINIC ACID [Suspect]
     Active Substance: LEUCOVORIN
     Dosage: 480 MILLIGRAM
     Route: 065
     Dates: start: 20201207
  11. VECTIBIX [Suspect]
     Active Substance: PANITUMUMAB
     Indication: COLORECTAL CANCER METASTATIC
     Dosage: 500 MILLIGRAM
     Route: 042
     Dates: start: 20200810
  12. BISOPROLOL [Concomitant]
     Active Substance: BISOPROLOL
     Indication: HYPERTENSION
     Dosage: 5 MILLIGRAM, ONCE A DAY
     Route: 048
  13. L?THYROXIN [Concomitant]
     Active Substance: LEVOTHYROXINE SODIUM
     Indication: HYPOTHYROIDISM
     Dosage: 175 MICROGRAM, ONCE A DAY
     Route: 048
     Dates: start: 1990
  14. IRINOTECAN [Suspect]
     Active Substance: IRINOTECAN
     Dosage: 220 MILLIGRAM
     Route: 065
     Dates: start: 20201207
  15. FOLINIC ACID [Suspect]
     Active Substance: LEUCOVORIN
     Dosage: 360 MILLIGRAM
     Route: 065
     Dates: start: 20201019
  16. FLUOROURACIL. [Suspect]
     Active Substance: FLUOROURACIL
     Dosage: 1500 MILLIGRAM
     Route: 040
     Dates: start: 20200810
  17. FLUOROURACIL. [Suspect]
     Active Substance: FLUOROURACIL
     Dosage: 740 MILLIGRAM
     Route: 040
     Dates: start: 20201019
  18. MOXONIDINE [Concomitant]
     Active Substance: MOXONIDINE
     Indication: HYPERTENSION
     Dosage: 0.2 MILLIGRAM, ONCE A DAY
     Route: 048
  19. IRINOTECAN [Suspect]
     Active Substance: IRINOTECAN
     Indication: COLORECTAL CANCER METASTATIC
     Dosage: 340 MILLIGRAM
     Route: 065
     Dates: start: 20200810
  20. CLEXANE [Concomitant]
     Active Substance: ENOXAPARIN SODIUM
     Indication: PROPHYLAXIS
     Dosage: 40 MILLIGRAM, ONCE A DAY
     Route: 058
     Dates: start: 202007
  21. SIMVASTATIN. [Concomitant]
     Active Substance: SIMVASTATIN
     Indication: HYPERCHOLESTEROLAEMIA
     Dosage: 10 MILLIGRAM, ONCE A DAY
     Route: 048
  22. JANUVIA [Concomitant]
     Active Substance: SITAGLIPTIN PHOSPHATE
     Indication: TYPE 2 DIABETES MELLITUS
     Dosage: 50 MILLIGRAM, ONCE A DAY
     Route: 048
  23. CANDESARTAN. [Concomitant]
     Active Substance: CANDESARTAN
     Indication: HYPERTENSION
     Dosage: 16 MILLIGRAM, TWO TIMES A DAY
     Route: 048
  24. AMLODIPINE [Concomitant]
     Active Substance: AMLODIPINE BESYLATE
     Indication: HYPERTENSION
     Dosage: 5 MILLIGRAM, TWO TIMES A DAY
     Route: 048
  25. IRINOTECAN [Suspect]
     Active Substance: IRINOTECAN
     Dosage: 360 MILLIGRAM
     Route: 065
     Dates: start: 20201019
  26. VECTIBIX [Suspect]
     Active Substance: PANITUMUMAB
     Dosage: 470 MILLIGRAM
     Route: 042
     Dates: start: 20200908
  27. NOVALGIN [Concomitant]
     Indication: PRODUCT USED FOR UNKNOWN INDICATION
     Dosage: 500 MILLIGRAM, AS NECESSARY
     Route: 048
     Dates: start: 202007

REACTIONS (1)
  - Stomatitis [Recovered/Resolved]

NARRATIVE: CASE EVENT DATE: 20200825
